FAERS Safety Report 7783312-3 (Version None)
Quarter: 2011Q3

REPORT INFORMATION
  Report Type: 
  Country: None (occurrence: None)
  Receive Date: 20110926
  Receipt Date: 20110912
  Transmission Date: 20111222
  Serious: Yes (Death)
  Sender: FDA-Public Use
  Company Number: JP-2011-11278

PATIENT
  Age: 75 Year
  Sex: Male
  Weight: 41 kg

DRUGS (19)
  1. DOBUTREX [Concomitant]
  2. ESTAZOLAM [Concomitant]
  3. SODIUM CHLORIDE INJ [Concomitant]
  4. DISTILLED WATER (DISTILLED WATER) [Concomitant]
  5. HANP (CARPERITIDE) [Concomitant]
  6. SODIUM CHLORIDE 0.9% [Concomitant]
  7. DEXTROSE 5% [Concomitant]
  8. DIGOXIN [Concomitant]
  9. LASIX [Concomitant]
  10. ASPIRIN [Concomitant]
  11. ZOLPIDEM TARTRATE [Concomitant]
  12. LACTEC (CALCIUM CHLORIDE DIHYDRATE, POTASSIUM CHLORIDE, SODIUM LACTATE [Concomitant]
  13. SAMSCA [Suspect]
     Indication: FLUID RETENTION
     Dosage: 15 MG MILLIGRAM(S), QD, ORAL ; 7.5 MG MILLIGRAM(S), QD, ORAL
     Route: 048
     Dates: start: 20110717, end: 20110719
  14. SAMSCA [Suspect]
     Indication: FLUID RETENTION
     Dosage: 15 MG MILLIGRAM(S), QD, ORAL ; 7.5 MG MILLIGRAM(S), QD, ORAL
     Route: 048
     Dates: start: 20110730, end: 20110730
  15. ALDACTONE S (SPIRONOLACTONE) [Concomitant]
  16. VERAPAMIL HYDROCHLORIDE [Concomitant]
  17. TAKEPRON (LANSOPRAZOLE) [Concomitant]
  18. DOBUTREX [Concomitant]
  19. JANUVIA [Concomitant]

REACTIONS (9)
  - HYPONATRAEMIA [None]
  - CARDIAC FAILURE [None]
  - PERIPHERAL COLDNESS [None]
  - CHEST PAIN [None]
  - RENAL FAILURE ACUTE [None]
  - BRADYCARDIA [None]
  - GENERAL PHYSICAL HEALTH DETERIORATION [None]
  - CONDITION AGGRAVATED [None]
  - HYPERKALAEMIA [None]
